FAERS Safety Report 9281532 (Version 1)
Quarter: 2013Q2

REPORT INFORMATION
  Report Type: Spontaneous
  Country: US (occurrence: US)
  Receive Date: 20130509
  Receipt Date: 20130509
  Transmission Date: 20140414
  Serious: No
  Sender: FDA-Public Use
  Company Number: US-B.I. PHARMACEUTICALS,INC./RIDGEFIELD-2013-BI-11910BP

PATIENT
  Age: 77 Year
  Sex: Female
  Weight: 38 kg

DRUGS (5)
  1. DULCOLAX STOOL SOFTENER [Suspect]
     Indication: FAECES HARD
     Dosage: 100 MG
     Route: 048
     Dates: start: 20130412
  2. SYNTHROID [Concomitant]
     Indication: HYPOTHYROIDISM
     Dosage: 75 MG
     Route: 048
     Dates: start: 2005
  3. MULTIVITAMIN [Concomitant]
     Indication: PROPHYLAXIS
     Route: 048
     Dates: start: 2001
  4. ASPIRIN [Concomitant]
     Indication: ANTICOAGULANT THERAPY
     Dosage: 81 MG
     Route: 048
     Dates: start: 2001
  5. UNKNOWN MEDICATION [Concomitant]
     Indication: OSTEOPOROSIS
     Route: 030
     Dates: start: 2012

REACTIONS (1)
  - Memory impairment [Not Recovered/Not Resolved]
